FAERS Safety Report 16872994 (Version 1)
Quarter: 2019Q4

REPORT INFORMATION
  Report Type: Spontaneous
  Country: CA (occurrence: CA)
  Receive Date: 20191001
  Receipt Date: 20191001
  Transmission Date: 20200122
  Serious: Yes (Hospitalization)
  Sender: FDA-Public Use
  Company Number: CA-PFIZER INC-2019420183

PATIENT
  Age: 34 Year
  Sex: Male
  Weight: 82 kg

DRUGS (10)
  1. METRONIDAZOLE. [Suspect]
     Active Substance: METRONIDAZOLE
     Indication: COLECTOMY
     Dosage: 500 MG, 2X/DAY
     Route: 048
  2. FENTANYL. [Concomitant]
     Active Substance: FENTANYL
     Dosage: UNK
  3. CEFAZOLIN [Concomitant]
     Active Substance: CEFAZOLIN
     Dosage: UNK
  4. METRONIDAZOLE. [Suspect]
     Active Substance: METRONIDAZOLE
     Indication: COLECTOMY
     Dosage: 500 MG, 2X/DAY
     Route: 042
  5. CEPHALEXIN [CEFALEXIN] [Concomitant]
     Active Substance: CEPHALEXIN
     Dosage: UNK
  6. PANTOPRAZOLE [Concomitant]
     Active Substance: PANTOPRAZOLE
     Dosage: UNK
  7. HALOPERIDOL. [Concomitant]
     Active Substance: HALOPERIDOL
     Dosage: UNK
  8. ENOXAPARIN [Concomitant]
     Active Substance: ENOXAPARIN
     Dosage: UNK
  9. MORPHINE [Concomitant]
     Active Substance: MORPHINE
     Dosage: UNK
  10. KETOROLAC [Concomitant]
     Active Substance: KETOROLAC TROMETHAMINE
     Dosage: UNK

REACTIONS (11)
  - Disorientation [Recovered/Resolved]
  - Sleep disorder [Recovered/Resolved]
  - Fear [Recovered/Resolved]
  - Hallucination, auditory [Recovered/Resolved]
  - Substance-induced psychotic disorder [Recovered/Resolved]
  - Paranoia [Recovered/Resolved]
  - Decreased appetite [Recovered/Resolved]
  - Psychotic disorder [Recovered/Resolved]
  - Confusional state [Recovered/Resolved]
  - Off label use [Unknown]
  - Product use in unapproved indication [Unknown]
